FAERS Safety Report 6061420-5 (Version None)
Quarter: 2009Q1

REPORT INFORMATION
  Report Type: 
  Country: None (occurrence: None)
  Receive Date: 20090129
  Receipt Date: 20090129
  Transmission Date: 20090719
  Serious: Yes (Hospitalization)
  Sender: FDA-Public Use
  Company Number: None

PATIENT
  Sex: Female
  Weight: 80.196 kg

DRUGS (1)
  1. WELLBUTRIN [Suspect]
     Dosage: 1 TAB DAILY PO
     Route: 048
     Dates: start: 20090121, end: 20090125

REACTIONS (2)
  - CHEST PAIN [None]
  - RHABDOMYOLYSIS [None]
